FAERS Safety Report 4561510-X (Version None)
Quarter: 2005Q1

REPORT INFORMATION
  Report Type: 
  Country: None (occurrence: None)
  Receive Date: 20050121
  Receipt Date: 20010815
  Transmission Date: 20050727
  Serious: Yes (Other)
  Sender: FDA-Public Use
  Company Number: 200218953

PATIENT
  Age: 30 Year
  Sex: Female

DRUGS (2)
  1. TAZORAC [Suspect]
     Indication: ACNE
  2. TETRACYCLINE [Concomitant]

REACTIONS (2)
  - ABORTION INDUCED [None]
  - DRUG EXPOSURE DURING PREGNANCY [None]
